FAERS Safety Report 24740879 (Version 1)
Quarter: 2024Q4

REPORT INFORMATION
  Report Type: Spontaneous
  Country: KR (occurrence: KR)
  Receive Date: 20241217
  Receipt Date: 20241217
  Transmission Date: 20250115
  Serious: Yes (Hospitalization)
  Sender: BOEHRINGER INGELHEIM
  Company Number: KR-BoehringerIngelheim-2024-BI-067375

PATIENT
  Age: 92 Year
  Sex: Male

DRUGS (1)
  1. PRADAXA [Suspect]
     Active Substance: DABIGATRAN ETEXILATE MESYLATE
     Indication: Arrhythmia
     Route: 048

REACTIONS (1)
  - Condition aggravated [Not Recovered/Not Resolved]
